FAERS Safety Report 4407137-1 (Version None)
Quarter: 2004Q3

REPORT INFORMATION
  Report Type: 
  Country: None (occurrence: None)
  Receive Date: 20040721
  Receipt Date: 20040706
  Transmission Date: 20050211
  Serious: Yes (Disabling)
  Sender: FDA-Public Use
  Company Number: 2004-DE-03741GD (0)

PATIENT
  Age: 70 Year
  Sex: Male

DRUGS (2)
  1. PREDNISONE [Suspect]
     Indication: PEMPHIGOID
     Dosage: HIGH DOSE
  2. CYCLOPHOSPHAMIDE [Suspect]
     Indication: PEMPHIGOID

REACTIONS (4)
  - CORNEAL SCAR [None]
  - SYMBLEPHARON [None]
  - TRICHIASIS [None]
  - VISUAL ACUITY REDUCED [None]
